FAERS Safety Report 7563141-6 (Version None)
Quarter: 2011Q2

REPORT INFORMATION
  Report Type: 
  Country: None (occurrence: None)
  Receive Date: 20110615
  Receipt Date: 20110607
  Transmission Date: 20111010
  Serious: Yes (Hospitalization, Other)
  Sender: FDA-Public Use
  Company Number: 2009AC000418

PATIENT
  Age: 72 Year
  Sex: Female

DRUGS (25)
  1. IRON SULFATETHIAMIN COMPOUND TAB [Concomitant]
  2. MULTI-VITAMIN [Concomitant]
  3. PRILOSEC [Concomitant]
  4. HYDRALAZINE HCL [Concomitant]
  5. ASPIRIN [Concomitant]
  6. EVISTA [Concomitant]
  7. VITAMIN D [Concomitant]
  8. DIGOXIN [Suspect]
     Dosage: 0.125 MG;QD;
     Dates: start: 20071128, end: 20091101
  9. TYLENOL-500 [Concomitant]
  10. LIMBITROL [Concomitant]
  11. BENTYL [Concomitant]
  12. CALCIUM CARBONATE [Concomitant]
  13. OMEPRAZOLE [Concomitant]
  14. CIPROFLOXACIN HCL [Concomitant]
  15. NEXIUM [Concomitant]
  16. COUMADIN [Concomitant]
  17. MICARDIS [Concomitant]
  18. DIOVAN [Concomitant]
  19. CARDURA [Concomitant]
  20. DIGOXIN [Suspect]
     Indication: CARDIAC DISORDER
     Dosage: 0.125 MG;QD;PO
     Route: 048
     Dates: start: 20060901, end: 20080501
  21. ROCEPHIN [Concomitant]
  22. FORTICAL [Concomitant]
  23. MAGNESIUM [Concomitant]
  24. MICARDIS HCT [Concomitant]
  25. HYDROCHLOROTHIAZIDE [Concomitant]

REACTIONS (71)
  - TOXICITY TO VARIOUS AGENTS [None]
  - VOMITING [None]
  - NEPHROGENIC ANAEMIA [None]
  - ESSENTIAL HYPERTENSION [None]
  - DYSPEPSIA [None]
  - FATIGUE [None]
  - DYSPNOEA EXERTIONAL [None]
  - PALPITATIONS [None]
  - VITAMIN D DEFICIENCY [None]
  - LACERATION [None]
  - HAEMATURIA [None]
  - GASTROENTERITIS [None]
  - URINARY TRACT INFECTION BACTERIAL [None]
  - SICK SINUS SYNDROME [None]
  - SOCIAL PROBLEM [None]
  - ANHEDONIA [None]
  - HILAR LYMPHADENOPATHY [None]
  - AORTIC VALVE INCOMPETENCE [None]
  - ATRIAL FIBRILLATION [None]
  - WEIGHT DECREASED [None]
  - NASOPHARYNGITIS [None]
  - MUSCULOSKELETAL DISCOMFORT [None]
  - PYREXIA [None]
  - SINUS BRADYCARDIA [None]
  - ATRIOVENTRICULAR BLOCK FIRST DEGREE [None]
  - ECG SIGNS OF MYOCARDIAL ISCHAEMIA [None]
  - HEMIPARESIS [None]
  - INJURY [None]
  - GRANULOMA [None]
  - MITRAL VALVE INCOMPETENCE [None]
  - DEHYDRATION [None]
  - COUGH [None]
  - DIARRHOEA [None]
  - SUPERINFECTION [None]
  - HYPOVOLAEMIA [None]
  - DELAYED RECOVERY FROM ANAESTHESIA [None]
  - ABDOMINAL DISCOMFORT [None]
  - NAUSEA [None]
  - RENAL DISORDER [None]
  - PAIN [None]
  - RHABDOMYOLYSIS [None]
  - ASTHENIA [None]
  - PNEUMONIA [None]
  - LOSS OF CONSCIOUSNESS [None]
  - LIMB INJURY [None]
  - SYNCOPE [None]
  - ABDOMINAL PAIN UPPER [None]
  - DYSPNOEA [None]
  - JAUNDICE [None]
  - CARDIAC FAILURE CONGESTIVE [None]
  - SINUS ARRHYTHMIA [None]
  - ATRIAL FLUTTER [None]
  - TRICUSPID VALVE INCOMPETENCE [None]
  - HAEMORRHAGE [None]
  - DIZZINESS [None]
  - ORTHOSTATIC HYPOTENSION [None]
  - BACK PAIN [None]
  - TACHYCARDIA [None]
  - OEDEMA [None]
  - PLEURAL EFFUSION [None]
  - FALL [None]
  - ANXIETY [None]
  - PRESYNCOPE [None]
  - HYPERBILIRUBINAEMIA [None]
  - COAGULOPATHY [None]
  - LIVER DISORDER [None]
  - NEUROGENIC BLADDER [None]
  - CARDIOMEGALY [None]
  - MITRAL VALVE STENOSIS [None]
  - THROMBOCYTOPENIA [None]
  - PULMONARY HYPERTENSION [None]
